FAERS Safety Report 7446419-6 (Version None)
Quarter: 2011Q2

REPORT INFORMATION
  Report Type: 
  Country: None (occurrence: None)
  Receive Date: 20110429
  Receipt Date: 20100917
  Transmission Date: 20111010
  Serious: No
  Sender: FDA-Public Use
  Company Number: US-ASTRAZENECA-2010SE44009

PATIENT
  Age: 48 Year
  Sex: Female
  Weight: 68.9 kg

DRUGS (4)
  1. NEXIUM [Suspect]
     Route: 048
     Dates: start: 20060101, end: 20100916
  2. ADVAIR DISKUS 100/50 [Concomitant]
  3. LORAZEPAM [Concomitant]
  4. ATENOLOL [Concomitant]
     Indication: HYPERTENSION

REACTIONS (7)
  - PARAESTHESIA ORAL [None]
  - ABDOMINAL DISTENSION [None]
  - ANXIETY [None]
  - CHEST PAIN [None]
  - DYSPHAGIA [None]
  - HYPERSENSITIVITY [None]
  - DYSPNOEA [None]
